FAERS Safety Report 4881669-4 (Version None)
Quarter: 2006Q1

REPORT INFORMATION
  Report Type: 
  Country: None (occurrence: None)
  Receive Date: 20060112
  Receipt Date: 20060112
  Transmission Date: 20060701
  Serious: Yes (Life-Threatening, Hospitalization)
  Sender: FDA-Public Use
  Company Number: None

PATIENT
  Sex: Female

DRUGS (1)
  1. DIAZEPAM [Suspect]
     Dosage: 5 MG   Q6H   PO
     Route: 048
     Dates: start: 20051201, end: 20051202

REACTIONS (2)
  - COMA [None]
  - RESPIRATORY DEPRESSION [None]
